FAERS Safety Report 17220386 (Version 3)
Quarter: 2020Q1

REPORT INFORMATION
  Report Type: Report from Study
  Country: CO (occurrence: CO)
  Receive Date: 20191231
  Receipt Date: 20200226
  Transmission Date: 20200409
  Serious: Yes (Hospitalization, Other)
  Sender: FDA-Public Use
  Company Number: CO-AMGEN-COLSL2019200131

PATIENT
  Age: 54 Year
  Sex: Male

DRUGS (4)
  1. VECTIBIX [Suspect]
     Active Substance: PANITUMUMAB
     Dosage: 396 MILLIGRAM, Q2WK
     Route: 042
     Dates: start: 20191223
  2. NATURAL TEARS [Concomitant]
     Active Substance: POLYVINYL ALCOHOL\POVIDONE
     Dosage: UNK (1 DROP, TO BE APPLIED ONE DROP EVERY 12 HOURS TO EYES)
     Dates: start: 20200103
  3. AMIKACIN. [Suspect]
     Active Substance: AMIKACIN
     Indication: URINARY TRACT INFECTION
     Dosage: UNK
     Route: 065
     Dates: start: 20191225
  4. VECTIBIX [Suspect]
     Active Substance: PANITUMUMAB
     Indication: COLORECTAL CANCER METASTATIC
     Dosage: 326 MILLIGRAM, Q2WK
     Route: 042
     Dates: start: 20191028, end: 2019

REACTIONS (10)
  - Skin reaction [Not Recovered/Not Resolved]
  - Rash [Recovered/Resolved]
  - Vomiting [Recovering/Resolving]
  - Blood sodium decreased [Recovering/Resolving]
  - Urinary tract infection [Recovering/Resolving]
  - Anxiety [Recovering/Resolving]
  - Malignant ascites [Recovering/Resolving]
  - Stomatitis [Recovered/Resolved]
  - Blood potassium decreased [Recovering/Resolving]
  - Peritonitis [Recovering/Resolving]

NARRATIVE: CASE EVENT DATE: 20191029
